FAERS Safety Report 9791616 (Version 4)
Quarter: 2014Q1

REPORT INFORMATION
  Report Type: Report from Study
  Country: US (occurrence: US)
  Receive Date: 20140102
  Receipt Date: 20140115
  Transmission Date: 20141002
  Serious: Yes (Hospitalization)
  Sender: FDA-Public Use
  Company Number: US-ROCHE-1308983

PATIENT
  Age: 54 Year
  Sex: Female

DRUGS (11)
  1. PERTUZUMAB [Suspect]
     Indication: BREAST CANCER
     Dosage: DATE OF LAST DOSE PRIOR TO SAE 06/NOV/2013
     Route: 042
     Dates: start: 20121207
  2. TRASTUZUMAB EMTANSINE [Suspect]
     Indication: BREAST CANCER
     Dosage: DATE OF LAST DOSE PRIOR TO SAE 06/NOV/2013
     Route: 042
     Dates: start: 20121207
  3. SYSTANE [Concomitant]
     Indication: DRY EYE
     Route: 065
     Dates: start: 20120514
  4. HYDROGEN PEROXIDE [Concomitant]
     Indication: TINNITUS
     Route: 065
     Dates: start: 20130301
  5. CLARITIN [Concomitant]
     Indication: TINNITUS
     Route: 065
     Dates: start: 20130301
  6. AUGMENTIN [Concomitant]
     Indication: SINUSITIS
     Route: 065
     Dates: start: 20130507, end: 201305
  7. ALBUTEROL [Concomitant]
     Indication: WHEEZING
     Route: 065
     Dates: start: 20110923
  8. ALLEGRA [Concomitant]
     Indication: EAR DISCOMFORT
     Route: 065
     Dates: start: 20130814
  9. RESTASIS [Concomitant]
     Indication: DRY EYE
     Route: 065
     Dates: start: 20130320
  10. OMEPRAZOLE [Concomitant]
     Indication: GASTROOESOPHAGEAL REFLUX DISEASE
     Route: 065
     Dates: start: 20100303
  11. POTASSIUM CHLORIDE [Concomitant]
     Indication: HYPOKALAEMIA
     Route: 065
     Dates: start: 20120106

REACTIONS (1)
  - Abdominal pain upper [Recovered/Resolved]
